FAERS Safety Report 9593047 (Version 3)
Quarter: 2013Q4

REPORT INFORMATION
  Report Type: Report from Study
  Country: JP (occurrence: JP)
  Receive Date: 20131004
  Receipt Date: 20131203
  Transmission Date: 20140711
  Serious: No
  Sender: FDA-Public Use
  Company Number: JP-ASTELLAS-2013JP010094

PATIENT
  Age: 81 Year
  Sex: Female
  Weight: 56.8 kg

DRUGS (1)
  1. MIRABEGRON [Suspect]
     Indication: HYPERTONIC BLADDER
     Dosage: 50 MG, UID/QD
     Route: 048
     Dates: start: 20130314, end: 20130401

REACTIONS (1)
  - Electrocardiogram QT prolonged [Unknown]
